FAERS Safety Report 7815685-7 (Version None)
Quarter: 2011Q4

REPORT INFORMATION
  Report Type: 
  Country: None (occurrence: None)
  Receive Date: 20111014
  Receipt Date: 20111007
  Transmission Date: 20120403
  Serious: Yes (Other)
  Sender: FDA-Public Use
  Company Number: PHHY2011JP89284

PATIENT
  Age: 72 Year
  Sex: Male

DRUGS (1)
  1. ZONISAMIDE [Suspect]
     Indication: PROPHYLAXIS
     Dosage: UNK UKN, UNK

REACTIONS (7)
  - DRUG RASH WITH EOSINOPHILIA AND SYSTEMIC SYMPTOMS [None]
  - EOSINOPHILIA [None]
  - RASH MACULO-PAPULAR [None]
  - RASH [None]
  - GENERALISED OEDEMA [None]
  - LIVER INJURY [None]
  - ROSEOLOVIRUS TEST POSITIVE [None]
